FAERS Safety Report 24526898 (Version 2)
Quarter: 2025Q2

REPORT INFORMATION
  Report Type: Report from Study
  Country: CO (occurrence: CO)
  Receive Date: 20241021
  Receipt Date: 20250513
  Transmission Date: 20250716
  Serious: Yes (Other)
  Sender: ASTELLAS
  Company Number: CO-ASTELLAS-2024-AER-013116

PATIENT
  Age: 59 Year
  Sex: Male
  Weight: 65 kg

DRUGS (6)
  1. TACROLIMUS [Suspect]
     Active Substance: TACROLIMUS
     Indication: Heart transplant
     Dosage: PROGRAF  XL 1 MG (2 CAPSULES) AND PROGRAF XL 5 MG (2 CAPSULES): DAILY DOSE OF 12 MG EVERY 24 HOURS
     Route: 048
     Dates: start: 20221211, end: 20241010
  2. TACROLIMUS [Suspect]
     Active Substance: TACROLIMUS
     Dosage: PROGRAF  XL 1 MG (2 CAPSULES) AND PROGRAF XL 5 MG (2 CAPSULES): DAILY DOSE OF 12 MG EVERY 24 HOURS
     Route: 048
     Dates: end: 202503
  3. TACROLIMUS [Suspect]
     Active Substance: TACROLIMUS
     Dosage: PROGRAF  XL 1 MG (2 CAPSULES) AND PROGRAF XL 5 MG (2 CAPSULES): DAILY DOSE OF 12 MG EVERY 24 HOURS
     Route: 048
     Dates: start: 202503
  4. TACROLIMUS [Suspect]
     Active Substance: TACROLIMUS
     Indication: Heart transplant
     Dosage: PROGRAF  XL 1 MG (2 CAPSULES) AND PROGRAF XL 5 MG (2 CAPSULES): DAILY DOSE OF 12 MG EVERY 24 HOURS
     Route: 048
     Dates: start: 20221211, end: 20241010
  5. TACROLIMUS [Suspect]
     Active Substance: TACROLIMUS
     Dosage: PROGRAF  XL 1 MG (2 CAPSULES) AND PROGRAF XL 5 MG (2 CAPSULES): DAILY DOSE OF 12 MG EVERY 24 HOURS
     Route: 048
     Dates: end: 202503
  6. TACROLIMUS [Suspect]
     Active Substance: TACROLIMUS
     Dosage: PROGRAF  XL 1 MG (2 CAPSULES) AND PROGRAF XL 5 MG (2 CAPSULES): DAILY DOSE OF 12 MG EVERY 24 HOURS
     Route: 048
     Dates: start: 202503

REACTIONS (7)
  - Hypothermia [Unknown]
  - Tremor [Unknown]
  - Heart rate increased [Unknown]
  - Weight decreased [Unknown]
  - Jaundice [Unknown]
  - Asthenia [Unknown]
  - Electrocardiogram abnormal [Unknown]

NARRATIVE: CASE EVENT DATE: 20241015
